FAERS Safety Report 6735276-9 (Version None)
Quarter: 2010Q2

REPORT INFORMATION
  Report Type: 
  Country: None (occurrence: None)
  Receive Date: 20100521
  Receipt Date: 20100512
  Transmission Date: 20101027
  Serious: Yes (Hospitalization, Other)
  Sender: FDA-Public Use
  Company Number: US-JNJFOC-20100505552

PATIENT
  Sex: Female
  Weight: 77.11 kg

DRUGS (6)
  1. TOPAMAX [Suspect]
     Indication: MIGRAINE PROPHYLAXIS
     Route: 048
  2. MULTIVITAMINS WITH IRON [Concomitant]
     Indication: VITAMIN SUPPLEMENTATION
     Route: 048
  3. GLUCOPHAGE [Concomitant]
     Indication: DIABETES MELLITUS
     Route: 048
  4. POTASSIUM CHLORIDE [Concomitant]
     Indication: BLOOD POTASSIUM
     Route: 048
  5. IBUPROFEN [Concomitant]
     Indication: ARTHRITIS
     Route: 048
  6. CALCIUM [Concomitant]
     Indication: MINERAL SUPPLEMENTATION
     Route: 048

REACTIONS (9)
  - ACCESSORY NAVICULAR SYNDROME [None]
  - CONFUSIONAL STATE [None]
  - CONVULSION [None]
  - CORONARY ARTERY OCCLUSION [None]
  - DRUG INEFFECTIVE [None]
  - ELECTROENCEPHALOGRAM ABNORMAL [None]
  - NAUSEA [None]
  - TENDON DISORDER [None]
  - WITHDRAWAL SYNDROME [None]
